FAERS Safety Report 14509575 (Version 2)
Quarter: 2018Q1

REPORT INFORMATION
  Report Type: Spontaneous
  Country: US (occurrence: US)
  Receive Date: 20180209
  Receipt Date: 20180320
  Transmission Date: 20180509
  Serious: No
  Sender: FDA-Public Use
  Company Number: US-GLAXOSMITHKLINE-US2018020838

PATIENT
  Age: 67 Year
  Sex: Female

DRUGS (20)
  1. VENTOLIN HFA [Suspect]
     Active Substance: ALBUTEROL SULFATE
     Indication: ASTHMA
     Dosage: 2 PUFF(S), PRN
     Route: 055
  2. TRAMADOL. [Concomitant]
     Active Substance: TRAMADOL
  3. LIDOCAINE TRANSDERMAL PATCH [Concomitant]
     Active Substance: LIDOCAINE
  4. ATROVENT [Concomitant]
     Active Substance: IPRATROPIUM BROMIDE
  5. LASIX [Concomitant]
     Active Substance: FUROSEMIDE
  6. METFORMIN [Concomitant]
     Active Substance: METFORMIN HYDROCHLORIDE
  7. PLAQUENIL [Concomitant]
     Active Substance: HYDROXYCHLOROQUINE SULFATE
  8. ALBUTEROL NEBULISER SOLUTION [Concomitant]
     Active Substance: ALBUTEROL SULFATE
  9. EPIPEN [Concomitant]
     Active Substance: EPINEPHRINE
  10. DUONEB NEBULISER SOLUTION [Concomitant]
  11. HYDROCHLOROTHIAZIDE. [Concomitant]
     Active Substance: HYDROCHLOROTHIAZIDE
  12. OMEPRAZOLE. [Concomitant]
     Active Substance: OMEPRAZOLE
  13. VOLTAREN [Concomitant]
     Active Substance: DICLOFENAC SODIUM
  14. SYMBICORT [Concomitant]
     Active Substance: BUDESONIDE\FORMOTEROL FUMARATE DIHYDRATE
  15. TIZANIDINE. [Concomitant]
     Active Substance: TIZANIDINE
  16. XANAX [Concomitant]
     Active Substance: ALPRAZOLAM
  17. FLONASE [Concomitant]
     Active Substance: FLUTICASONE PROPIONATE
  18. RESTASIS [Concomitant]
     Active Substance: CYCLOSPORINE
  19. SYNTHROID [Concomitant]
     Active Substance: LEVOTHYROXINE SODIUM
  20. PREDNISONE. [Concomitant]
     Active Substance: PREDNISONE

REACTIONS (5)
  - Malaise [Unknown]
  - Product quality issue [Unknown]
  - Asthma [Recovering/Resolving]
  - Product use issue [Unknown]
  - Bronchitis [Recovering/Resolving]

NARRATIVE: CASE EVENT DATE: 201712
